FAERS Safety Report 7778212-9 (Version None)
Quarter: 2011Q3

REPORT INFORMATION
  Report Type: 
  Country: None (occurrence: None)
  Receive Date: 20110926
  Receipt Date: 20110919
  Transmission Date: 20111222
  Serious: Yes (Other)
  Sender: FDA-Public Use
  Company Number: US-TEVA-301398USA

PATIENT
  Age: 9 Year
  Sex: Female

DRUGS (2)
  1. FLUTICASONE PROPIONATE [Interacting]
     Indication: ASTHMA
     Dosage: 110 UG/ACTUATION, 2 PUFFS TWICE DAILY
     Route: 055
  2. FLUCONAZOLE [Suspect]
     Indication: VULVOVAGINAL CANDIDIASIS
     Route: 048

REACTIONS (3)
  - DRUG INTERACTION [None]
  - ADRENAL INSUFFICIENCY [None]
  - CUSHING'S SYNDROME [None]
